FAERS Safety Report 7593310-0 (Version None)
Quarter: 2011Q3

REPORT INFORMATION
  Report Type: 
  Country: None (occurrence: None)
  Receive Date: 20110706
  Receipt Date: 20110624
  Transmission Date: 20111222
  Serious: Yes (Disabling, Other)
  Sender: FDA-Public Use
  Company Number: US-BAYER-201026587NA

PATIENT
  Age: 26 Year
  Sex: Female
  Weight: 55 kg

DRUGS (3)
  1. YASMIN [Suspect]
     Dosage: UNK
     Dates: start: 20041005, end: 20050108
  2. LEVOTHYROXINE SODIUM [Concomitant]
     Indication: HYPOTHYROIDISM
     Dates: start: 20070101
  3. YAZ [Suspect]
     Indication: CONTRACEPTION
     Route: 048
     Dates: start: 20060901, end: 20080715

REACTIONS (9)
  - PAIN [None]
  - ABDOMINAL PAIN UPPER [None]
  - NAUSEA [None]
  - EMOTIONAL DISTRESS [None]
  - FATIGUE [None]
  - CHOLECYSTITIS CHRONIC [None]
  - FEAR OF DEATH [None]
  - DEPRESSION [None]
  - NERVOUSNESS [None]
